FAERS Safety Report 4571956-1 (Version None)
Quarter: 2005Q1

REPORT INFORMATION
  Report Type: 
  Country: None (occurrence: None)
  Receive Date: 20050203
  Receipt Date: 20050203
  Transmission Date: 20050727
  Serious: Yes (Other)
  Sender: FDA-Public Use
  Company Number: None

PATIENT
  Age: 36 Year
  Sex: Female
  Weight: 68.0396 kg

DRUGS (1)
  1. SOTOLOL [Suspect]
     Dosage: 120 MG BID

REACTIONS (2)
  - PHARMACEUTICAL PRODUCT COMPLAINT [None]
  - VENTRICULAR ARRHYTHMIA [None]
